FAERS Safety Report 4599776-2 (Version None)
Quarter: 2005Q1

REPORT INFORMATION
  Report Type: 
  Country: None (occurrence: None)
  Receive Date: 20050303
  Receipt Date: 20050211
  Transmission Date: 20050727
  Serious: Yes (Death, Hospitalization)
  Sender: FDA-Public Use
  Company Number: A03200500437

PATIENT
  Age: 37 Year
  Sex: Male

DRUGS (4)
  1. ELOXATIN [Suspect]
     Indication: COLON CANCER
     Dosage: 170 MG OTHER - INTRAVENOUS NOS
     Route: 042
     Dates: start: 20050207, end: 20050207
  2. FLUOROURACIL [Concomitant]
  3. LEUCOVORIN [Concomitant]
  4. LORAZEPAM [Concomitant]

REACTIONS (4)
  - CARDIAC ARREST [None]
  - EJECTION FRACTION DECREASED [None]
  - INSOMNIA [None]
  - VENTRICULAR FIBRILLATION [None]
